FAERS Safety Report 15619876 (Version 1)
Quarter: 2018Q4

REPORT INFORMATION
  Report Type: Spontaneous
  Country: GR (occurrence: GR)
  Receive Date: 20181115
  Receipt Date: 20181115
  Transmission Date: 20190205
  Serious: Yes (Other)
  Sender: FDA-Public Use
  Company Number: GR-ROCHE-2213579

PATIENT
  Age: 72 Year
  Sex: Male

DRUGS (1)
  1. ERIVEDGE [Suspect]
     Active Substance: VISMODEGIB
     Indication: PRODUCT USED FOR UNKNOWN INDICATION
     Route: 065

REACTIONS (8)
  - Muscle fatigue [Unknown]
  - Alopecia [Unknown]
  - Ageusia [Unknown]
  - Muscle spasms [Unknown]
  - Weight decreased [Unknown]
  - Nausea [Unknown]
  - Dysgeusia [Unknown]
  - Diarrhoea [Unknown]
